FAERS Safety Report 8500130-9 (Version None)
Quarter: 2012Q3

REPORT INFORMATION
  Report Type: 
  Country: None (occurrence: None)
  Receive Date: 20120710
  Receipt Date: 20120705
  Transmission Date: 20120928
  Serious: Yes (Hospitalization)
  Sender: FDA-Public Use
  Company Number: US-PFIZER INC-2011US-44056

PATIENT
  Sex: Female
  Weight: 61 kg

DRUGS (7)
  1. CALAN [Suspect]
     Dosage: 120 MG, QD
     Route: 048
  2. ROBAXIN [Concomitant]
     Dosage: UNK
  3. VERAPAMIL [Suspect]
     Dosage: UNK
     Dates: end: 19960101
  4. HYOSCYAMINE [Concomitant]
     Dosage: UNK
  5. SINGULAIR [Concomitant]
     Dosage: UNK
  6. CALAN [Suspect]
     Indication: MITRAL VALVE PROLAPSE
     Dosage: 120 MG, AT NIGHT
  7. AMITRIPTYLINE [Concomitant]
     Dosage: UNK

REACTIONS (3)
  - KNEE OPERATION [None]
  - BLOOD PRESSURE DECREASED [None]
  - LOSS OF CONSCIOUSNESS [None]
